FAERS Safety Report 21684382 (Version 1)
Quarter: 2022Q4

REPORT INFORMATION
  Report Type: Spontaneous
  Country: US (occurrence: None)
  Receive Date: 20221202
  Receipt Date: 20221202
  Transmission Date: 20230112
  Serious: Yes (Hospitalization)
  Sender: FDA-Public Use
  Company Number: None

PATIENT
  Sex: Male

DRUGS (1)
  1. SUNITINIB [Suspect]
     Active Substance: SUNITINIB
     Dosage: 50 DAILY ORAL
     Route: 048

REACTIONS (5)
  - Gastrointestinal haemorrhage [None]
  - Full blood count abnormal [None]
  - Heart rate increased [None]
  - Product dose omission issue [None]
  - Vomiting [None]
